FAERS Safety Report 5165750-0 (Version None)
Quarter: 2006Q4

REPORT INFORMATION
  Report Type: 
  Country: None (occurrence: None)
  Receive Date: 20061128
  Receipt Date: 20060727
  Transmission Date: 20070319
  Serious: Yes (Life-Threatening, Hospitalization)
  Sender: FDA-Public Use
  Company Number: GXKR2006GR04324

PATIENT
  Age: 70 Year
  Sex: Male
  Weight: 77 kg

DRUGS (5)
  1. METFORMIN (NGX) (METFORMIN) [Suspect]
     Dosage: 850 MG, TID,
  2. FUROSEMIDE [Suspect]
     Dosage: 40 MG, QD,
  3. DICLOFENAC SODIUM [Suspect]
     Dosage: 25 MG, TID, ORAL
     Route: 048
  4. ISOSORBIDE MONONITRATE [Concomitant]
  5. QUINAPRIL HCL [Concomitant]

REACTIONS (12)
  - ABDOMINAL DISCOMFORT [None]
  - AGITATION [None]
  - DISORIENTATION [None]
  - HYPERKALAEMIA [None]
  - LACTIC ACIDOSIS [None]
  - LEUKOCYTOSIS [None]
  - MALAISE [None]
  - MYALGIA [None]
  - RENAL FAILURE CHRONIC [None]
  - RESPIRATORY DISTRESS [None]
  - SOMNOLENCE [None]
  - TACHYCARDIA [None]
